FAERS Safety Report 6696736-2 (Version None)
Quarter: 2010Q2

REPORT INFORMATION
  Report Type: 
  Country: None (occurrence: None)
  Receive Date: 20100426
  Receipt Date: 20100420
  Transmission Date: 20101027
  Serious: Yes (Hospitalization)
  Sender: FDA-Public Use
  Company Number: US-RB-006723-10

PATIENT
  Age: 65 Year
  Sex: Male

DRUGS (2)
  1. SUBOXONE [Suspect]
     Indication: DRUG USE FOR UNKNOWN INDICATION
     Dosage: DOSING DETAILS UNKNOWN
     Route: 065
  2. CLOTTING FACTOR [Suspect]
     Indication: DRUG USE FOR UNKNOWN INDICATION
     Dosage: CALLER SELF-ADMINISTERS 6,000 UNITS
     Route: 065

REACTIONS (13)
  - CONTUSION [None]
  - DRUG WITHDRAWAL SYNDROME [None]
  - FALL [None]
  - HAEMATOMA [None]
  - HOSPITALISATION [None]
  - HYPERSENSITIVITY [None]
  - INSOMNIA [None]
  - OEDEMA PERIPHERAL [None]
  - OPEN WOUND [None]
  - PAIN [None]
  - RHINORRHOEA [None]
  - ROAD TRAFFIC ACCIDENT [None]
  - SKIN ODOUR ABNORMAL [None]
